FAERS Safety Report 11180421 (Version 2)
Quarter: 2015Q2

REPORT INFORMATION
  Report Type: Spontaneous
  Country: DE (occurrence: DE)
  Receive Date: 20150611
  Receipt Date: 20150617
  Transmission Date: 20150821
  Serious: Yes (Hospitalization, Other)
  Sender: FDA-Public Use
  Company Number: DE-PFIZER INC-2015193868

PATIENT
  Age: 24 Year
  Sex: Female
  Weight: 75 kg

DRUGS (5)
  1. AGOMELATINE [Suspect]
     Active Substance: AGOMELATINE
     Dosage: 1.05 G, UNK
     Route: 065
     Dates: start: 20150604
  2. IBUPROFEN. [Suspect]
     Active Substance: IBUPROFEN
     Dosage: 6 G, UNK
     Route: 065
     Dates: start: 20150604
  3. VENLAFAXINE HCL [Suspect]
     Active Substance: VENLAFAXINE HYDROCHLORIDE
     Dosage: 2.25 G, UNK
     Route: 065
     Dates: start: 20150604
  4. PANTOZOL [Suspect]
     Active Substance: PANTOPRAZOLE SODIUM
     Dosage: 2.8 G (40 MG TABLETS), UNK
     Route: 065
     Dates: start: 20150604
  5. TRIMIPRAMINE [Suspect]
     Active Substance: TRIMIPRAMINE
     Dosage: 2.0 G, UNK
     Route: 065
     Dates: start: 20150604

REACTIONS (7)
  - Hypoglycaemia [Unknown]
  - Somnolence [Unknown]
  - Tachycardia [Unknown]
  - Hypotension [Unknown]
  - Intentional overdose [Unknown]
  - Suicide attempt [Unknown]
  - Seizure [Unknown]

NARRATIVE: CASE EVENT DATE: 20150604
